FAERS Safety Report 7532829-5 (Version None)
Quarter: 2011Q2

REPORT INFORMATION
  Report Type: 
  Country: None (occurrence: None)
  Receive Date: 20110608
  Receipt Date: 20110602
  Transmission Date: 20111010
  Serious: Yes (Other)
  Sender: FDA-Public Use
  Company Number: US-PFIZER INC-2011120365

PATIENT
  Sex: Female
  Weight: 58.957 kg

DRUGS (1)
  1. ROBITUSSIN COUGH AND COLD LONG ACTING [Suspect]
     Indication: COUGH
     Dosage: UNK, DAILY
     Route: 048
     Dates: start: 20110530, end: 20110530

REACTIONS (3)
  - RASH GENERALISED [None]
  - GENERALISED ERYTHEMA [None]
  - SWELLING [None]
